FAERS Safety Report 10113469 (Version 1)
Quarter: 2014Q2

REPORT INFORMATION
  Report Type: Spontaneous
  Country: US (occurrence: US)
  Receive Date: 20140425
  Receipt Date: 20140425
  Transmission Date: 20141212
  Serious: Yes (Hospitalization)
  Sender: FDA-Public Use
  Company Number: US-BAYER-2014-059762

PATIENT
  Age: 41 Year
  Sex: Female
  Weight: 99.77 kg

DRUGS (4)
  1. YASMIN [Suspect]
     Indication: DYSFUNCTIONAL UTERINE BLEEDING
  2. LEXAPRO [Concomitant]
     Dosage: 10 MG DAILY
     Route: 048
  3. LYRICA [Concomitant]
     Indication: PAIN IN EXTREMITY
     Dosage: 150 MG, BID
     Route: 048
  4. OXYCODONE [Concomitant]
     Dosage: 15 MG, [EVERY] 4-6 HOURS PRN

REACTIONS (1)
  - Deep vein thrombosis [None]
